FAERS Safety Report 8928065 (Version 1)
Quarter: 2012Q4

REPORT INFORMATION
  Report Type: Spontaneous
  Country: US (occurrence: None)
  Receive Date: 20121120
  Receipt Date: 20121120
  Transmission Date: 20130627
  Serious: No
  Sender: FDA-Public Use
  Company Number: SPI201200297

PATIENT
  Age: 22 Year
  Sex: Female

DRUGS (1)
  1. AMITIZA [Suspect]
     Indication: CHRONIC IDIOPATHIC CONSTIPATION
     Dates: start: 2009, end: 2009

REACTIONS (2)
  - Dyspnoea [None]
  - Dizziness [None]
